FAERS Safety Report 4549446-1 (Version None)
Quarter: 2005Q1

REPORT INFORMATION
  Report Type: 
  Country: None (occurrence: None)
  Receive Date: 20050106
  Receipt Date: 20041230
  Transmission Date: 20050727
  Serious: Yes (Hospitalization, Other)
  Sender: FDA-Public Use
  Company Number: 163-20785-04100433

PATIENT
  Age: 71 Year
  Sex: Male

DRUGS (1)
  1. THALOMID [Suspect]
     Indication: MULTIPLE SCLEROSIS
     Dosage: 200 MG, DAILY, ORAL
     Route: 048
     Dates: start: 20040604

REACTIONS (5)
  - CARDIAC AMYLOIDOSIS [None]
  - CARDIAC FAILURE [None]
  - NEUROPATHY PERIPHERAL [None]
  - OEDEMA PERIPHERAL [None]
  - RESPIRATORY FAILURE [None]
